FAERS Safety Report 19126807 (Version 2)
Quarter: 2021Q2

REPORT INFORMATION
  Report Type: Spontaneous
  Country: JP (occurrence: JP)
  Receive Date: 20210412
  Receipt Date: 20210428
  Transmission Date: 20210717
  Serious: Yes (Hospitalization, Other)
  Sender: FDA-Public Use
  Company Number: JP-B.I. PHARMACEUTICALS,INC./RIDGEFIELD-2021-BI-095952

PATIENT
  Age: 85 Year
  Sex: Male

DRUGS (3)
  1. WARFARIN [WARFARIN POTASSIUM] [Concomitant]
     Active Substance: WARFARIN POTASSIUM
     Indication: EMBOLIC STROKE
     Route: 048
  2. E KEPPRA [Concomitant]
     Active Substance: LEVETIRACETAM
     Indication: PRODUCT USED FOR UNKNOWN INDICATION
     Route: 048
  3. PRAZAXA [Suspect]
     Active Substance: DABIGATRAN ETEXILATE MESYLATE
     Indication: ATRIAL FIBRILLATION
     Route: 048

REACTIONS (1)
  - Meningioma [Unknown]
